FAERS Safety Report 22231335 (Version 1)
Quarter: 2023Q2

REPORT INFORMATION
  Report Type: Spontaneous
  Country: US (occurrence: US)
  Receive Date: 20230420
  Receipt Date: 20230420
  Transmission Date: 20230721
  Serious: No
  Sender: FDA-Public Use
  Company Number: US-SA-SAC20230418000556

PATIENT
  Age: 3 Year
  Sex: Female

DRUGS (9)
  1. DUPIXENT [Suspect]
     Active Substance: DUPILUMAB
     Indication: Dermatitis atopic
     Dosage: 200 MG, Q4W
     Route: 058
  2. ELIDEL [Concomitant]
     Active Substance: PIMECROLIMUS
     Dosage: UNK
  3. EPIPEN JR [Concomitant]
     Active Substance: EPINEPHRINE
     Dosage: UNK
  4. FLUOCINOLONE [Concomitant]
     Active Substance: FLUOCINOLONE
     Dosage: UNK
  5. FLUTICASONE [Concomitant]
     Active Substance: FLUTICASONE
     Dosage: UNK UNK, TID
  6. MOMETASONE FUROATE [Concomitant]
     Active Substance: MOMETASONE FUROATE
     Dosage: UNK
  7. MUPIROCIN [Concomitant]
     Active Substance: MUPIROCIN
     Dosage: UNK
  8. ZYRTEC [Concomitant]
     Active Substance: CETIRIZINE HYDROCHLORIDE
     Dosage: UNK
  9. TRIAMCINOLONE [Concomitant]
     Active Substance: TRIAMCINOLONE
     Dosage: UNK

REACTIONS (9)
  - Vomiting [Unknown]
  - Pyrexia [Unknown]
  - Abdominal pain [Unknown]
  - Lip erythema [Unknown]
  - Lip dry [Unknown]
  - Ocular hyperaemia [Unknown]
  - Erythema [Unknown]
  - Eye pruritus [Unknown]
  - Conjunctivitis [Unknown]
